FAERS Safety Report 5709413-9 (Version None)
Quarter: 2008Q2

REPORT INFORMATION
  Report Type: 
  Country: None (occurrence: None)
  Receive Date: 20080418
  Receipt Date: 20080416
  Transmission Date: 20081010
  Serious: Yes (Death, Hospitalization)
  Sender: FDA-Public Use
  Company Number: FR-ASTRAZENECA-2008CG00587

PATIENT
  Age: 31441 Day
  Sex: Male

DRUGS (14)
  1. CASODEX [Suspect]
     Indication: PROSTATE CANCER METASTATIC
     Route: 048
     Dates: start: 20080211
  2. ZOLADEX [Suspect]
     Indication: PROSTATE CANCER METASTATIC
     Route: 058
     Dates: start: 20080211
  3. CEFTRIAXONE [Suspect]
     Route: 042
     Dates: start: 20080210, end: 20080222
  4. OFLOXACIN [Suspect]
     Route: 042
     Dates: start: 20080210, end: 20080220
  5. OFLOCET [Suspect]
     Route: 048
     Dates: start: 20080220, end: 20080225
  6. DOLIPRANE [Suspect]
     Indication: PYREXIA
     Route: 048
     Dates: start: 20080207
  7. MOTILYO [Suspect]
     Indication: NAUSEA
     Route: 048
     Dates: start: 20080207, end: 20080226
  8. LOVENOX [Suspect]
     Route: 058
     Dates: start: 20080214, end: 20080225
  9. TADENAN [Suspect]
     Route: 048
     Dates: start: 20080125, end: 20080226
  10. SEROPRAM [Concomitant]
     Route: 048
  11. TRIATEC [Concomitant]
     Route: 048
     Dates: start: 20071030
  12. ISOPTIN [Concomitant]
     Route: 048
     Dates: start: 20071030
  13. KARDEGIC [Concomitant]
     Route: 048
     Dates: start: 20071030
  14. PERMIXON [Concomitant]
     Route: 048
     Dates: start: 20080124, end: 20080125

REACTIONS (1)
  - AGRANULOCYTOSIS [None]
